FAERS Safety Report 18475472 (Version 2)
Quarter: 2020Q4

REPORT INFORMATION
  Report Type: Spontaneous
  Country: FR (occurrence: FR)
  Receive Date: 20201107
  Receipt Date: 20201124
  Transmission Date: 20210114
  Serious: Yes (Hospitalization, Other)
  Sender: FDA-Public Use
  Company Number: FR-AUROBINDO-AUR-APL-2020-054300

PATIENT
  Age: 64 Year
  Sex: Male
  Weight: 117.75 kg

DRUGS (4)
  1. COUMADINE [Interacting]
     Active Substance: WARFARIN SODIUM
     Indication: JUGULAR VEIN THROMBOSIS
     Dosage: 4 MILLIGRAM, ONCE A DAY
     Route: 048
     Dates: start: 20191107, end: 20200916
  2. KARDEGIC [Interacting]
     Active Substance: ASPIRIN DL-LYSINE
     Indication: PROPHYLAXIS
     Dosage: 75 MILLIGRAM, ONCE A DAY
     Route: 048
     Dates: end: 20200916
  3. CEFTAZIDIME MYLAN [Interacting]
     Active Substance: CEFTAZIDIME
     Indication: SEPSIS
     Dosage: UNK
     Route: 042
     Dates: start: 202009
  4. LEVOFLOXACIN ARROW [Suspect]
     Active Substance: LEVOFLOXACIN
     Indication: SEPSIS
     Dosage: UNK
     Route: 042
     Dates: start: 202009

REACTIONS (4)
  - Drug interaction [Recovered/Resolved]
  - Anaemia [Not Recovered/Not Resolved]
  - International normalised ratio increased [Recovered/Resolved]
  - Gastrointestinal haemorrhage [Recovered/Resolved]

NARRATIVE: CASE EVENT DATE: 20200914
